FAERS Safety Report 9194160 (Version 1)
Quarter: 2013Q1

REPORT INFORMATION
  Report Type: Spontaneous
  Country: DE (occurrence: DE)
  Receive Date: 20130327
  Receipt Date: 20130327
  Transmission Date: 20140127
  Serious: Yes (Hospitalization, Other)
  Sender: FDA-Public Use
  Company Number: DE-ROXANE LABORATORIES, INC.-2013-RO-00422RO

PATIENT
  Age: 45 Year
  Sex: Female
  Weight: 69 kg

DRUGS (4)
  1. LITHIUM CARBONATE [Suspect]
     Indication: BIPOLAR II DISORDER
     Dosage: 600 MG
  2. LITHIUM CARBONATE [Suspect]
     Dosage: 800 MG
  3. LAMOTRIGINE [Suspect]
     Indication: BIPOLAR II DISORDER
     Dosage: 200 MG
  4. VENLAFAXINE [Suspect]
     Indication: BIPOLAR II DISORDER
     Dosage: 150 MG

REACTIONS (2)
  - Intracranial pressure increased [Recovered/Resolved with Sequelae]
  - Major depression [Recovered/Resolved]
